FAERS Safety Report 7530713-4 (Version None)
Quarter: 2011Q2

REPORT INFORMATION
  Report Type: 
  Country: None (occurrence: None)
  Receive Date: 20110607
  Receipt Date: 20110525
  Transmission Date: 20111010
  Serious: Yes (Hospitalization)
  Sender: FDA-Public Use
  Company Number: NO-PFIZER INC-2011112538

PATIENT
  Age: 56 Year
  Sex: Male

DRUGS (10)
  1. ASPIRIN [Suspect]
     Indication: AORTIC ANEURYSM
     Route: 048
     Dates: start: 20051128
  2. GLIPIZIDE [Suspect]
     Indication: TYPE 2 DIABETES MELLITUS
     Dosage: UNK
     Dates: start: 20080624
  3. SAXAGLIPTIN [Suspect]
     Indication: TYPE 2 DIABETES MELLITUS
     Dosage: UNK
     Dates: start: 20080624
  4. TRAMADOL HCL [Concomitant]
     Dates: start: 20090401
  5. METFORMIN HCL [Suspect]
     Indication: TYPE 2 DIABETES MELLITUS
     Dosage: UNK
     Route: 048
     Dates: start: 20060622
  6. IBUPROFEN [Suspect]
     Indication: GINGIVITIS
     Dosage: UNK
     Route: 048
     Dates: start: 20081215
  7. PINEX FORTE [Concomitant]
     Dosage: UNK
     Dates: start: 20081022
  8. PLACEBO [Concomitant]
     Indication: TYPE 2 DIABETES MELLITUS
     Dosage: UNK
     Dates: start: 20080624
  9. SIMVASTATIN [Concomitant]
     Dosage: UNK
     Dates: start: 20060622
  10. PARACET [Concomitant]
     Dates: start: 20000601

REACTIONS (1)
  - GASTRIC ULCER [None]
